FAERS Safety Report 15729510 (Version 2)
Quarter: 2019Q2

REPORT INFORMATION
  Report Type: Spontaneous
  Country: US (occurrence: US)
  Receive Date: 20181217
  Receipt Date: 20190404
  Transmission Date: 20190711
  Serious: No
  Sender: FDA-Public Use
  Company Number: US-PFIZER INC-2018509681

PATIENT
  Age: 14 Year
  Sex: Female
  Weight: 88.1 kg

DRUGS (21)
  1. CALCIUM [Suspect]
     Active Substance: CALCIUM
     Indication: BONE DISORDER
     Dosage: UNK, 2X/DAY
  2. GENTAMICIN SULFATE. [Suspect]
     Active Substance: GENTAMICIN SULFATE
     Dosage: UNK, 2X/DAY
     Route: 061
     Dates: start: 20181120
  3. CHLORHEXIDINE [Suspect]
     Active Substance: CHLORHEXIDINE
     Dosage: UNK, DAILY (1 APPLICATION, TOPICAL)
     Route: 061
     Dates: start: 20181120
  4. CITALOPRAM [Suspect]
     Active Substance: CITALOPRAM HYDROBROMIDE
     Dosage: 10 MG, 2X/DAY
     Route: 048
     Dates: start: 20181120
  5. NAPROXEN. [Suspect]
     Active Substance: NAPROXEN
     Indication: PAIN
     Dosage: 500 MG, 2X/DAY
     Route: 048
     Dates: start: 20181120
  6. PREDNISONE. [Suspect]
     Active Substance: PREDNISONE
     Indication: ARTHRITIS
     Dosage: 50 MG, DAILY (5 TABLETS ON DAY 1)
     Route: 048
     Dates: start: 20181130
  7. PREDNISONE. [Suspect]
     Active Substance: PREDNISONE
     Dosage: 40 MG, DAILY (4 TABLETS ON DAY 2)
     Route: 048
  8. CLINDAMYCIN PHOSPHATE. [Suspect]
     Active Substance: CLINDAMYCIN PHOSPHATE
     Dosage: UNK, 2X/DAY
     Route: 061
     Dates: start: 20181120
  9. TORADOL [Concomitant]
     Active Substance: KETOROLAC TROMETHAMINE
     Dosage: UNK UNK, AS NEEDED (EVERY 6 HOUR)
     Route: 042
  10. MOTRIN [Concomitant]
     Active Substance: IBUPROFEN
     Dosage: 600 MG, EVERY 6 HRS
     Route: 048
  11. PREDNISONE. [Suspect]
     Active Substance: PREDNISONE
     Dosage: 10 MG, DAILY (1 TABLET DAILY )
     Route: 048
  12. VITAMIN D [COLECALCIFEROL] [Suspect]
     Active Substance: CHOLECALCIFEROL
     Dosage: UNK
  13. RANITIDINE. [Suspect]
     Active Substance: RANITIDINE
     Dosage: 75 MG, 2X/DAY
     Route: 048
     Dates: start: 20181120
  14. CELEXA [CELECOXIB] [Concomitant]
     Active Substance: CELECOXIB
     Dosage: 10 MG, 2X/DAY
     Route: 048
  15. METFORMIN [Concomitant]
     Active Substance: METFORMIN HYDROCHLORIDE
     Dosage: UNK, SINGLE (ONLY TOOK ONE DOSE)
  16. METHOTREXATE. [Suspect]
     Active Substance: METHOTREXATE
     Dosage: 20 MG, WEEKLY (2.5 MG ORAL TABLET, 8 TABLET, PO, Q7DAY)
     Route: 048
     Dates: start: 20181130
  17. FOLIC ACID. [Suspect]
     Active Substance: FOLIC ACID
     Dosage: 1 MG, DAILY (EVERY NIGHT EXCEPT THE NIGHT YOU TAKE METHOTREXATE)
     Route: 048
     Dates: start: 20181130
  18. LANSOPRAZOLE. [Suspect]
     Active Substance: LANSOPRAZOLE
     Dosage: 30 MG, DAILY (AS NEEDED WHILE TAKING PREDNISONE)
     Route: 048
     Dates: start: 20181130
  19. PREDNISONE. [Suspect]
     Active Substance: PREDNISONE
     Dosage: 50 MG, DAILY
  20. PREDNISONE. [Suspect]
     Active Substance: PREDNISONE
     Dosage: 30 MG, DAILY (3 TABLETS ON DAY 3)
     Route: 048
  21. PREDNISONE. [Suspect]
     Active Substance: PREDNISONE
     Dosage: 20 MG, DAILY (2 TABLETS ON DAYS 4-20)
     Route: 048

REACTIONS (6)
  - Arthralgia [Unknown]
  - Joint instability [Unknown]
  - Pain [Unknown]
  - Arthritis [Unknown]
  - Weight decreased [Unknown]
  - Decreased appetite [Unknown]
